FAERS Safety Report 4421372-8 (Version None)
Quarter: 2004Q3

REPORT INFORMATION
  Report Type: 
  Country: None (occurrence: None)
  Receive Date: 20040707
  Receipt Date: 20040331
  Transmission Date: 20050211
  Serious: Yes (Hospitalization)
  Sender: FDA-Public Use
  Company Number: 355045

PATIENT
  Age: 53 Year
  Sex: Female
  Weight: 42.6 kg

DRUGS (1)
  1. FUZEON [Suspect]
     Indication: HIV INFECTION
     Dosage: 90 MG 2 PER DAY SUBCUTANEOUS
     Route: 058
     Dates: start: 20031230, end: 20040110

REACTIONS (8)
  - BONE PAIN [None]
  - CHILLS [None]
  - HYPERSENSITIVITY [None]
  - MYALGIA [None]
  - NEUROPATHY [None]
  - PAIN [None]
  - PYREXIA [None]
  - VOMITING [None]
